FAERS Safety Report 16475630 (Version 1)
Quarter: 2019Q2

REPORT INFORMATION
  Report Type: Report from Study
  Country: US (occurrence: US)
  Receive Date: 20190625
  Receipt Date: 20190625
  Transmission Date: 20190711
  Serious: Yes (Hospitalization, Other)
  Sender: FDA-Public Use
  Company Number: US-PFIZER INC-2019237702

PATIENT
  Age: 73 Year
  Sex: Male
  Weight: 104 kg

DRUGS (7)
  1. VANCOMYCIN HCL [Suspect]
     Active Substance: VANCOMYCIN HYDROCHLORIDE
     Indication: PYREXIA
     Dosage: 2 G, SINGLE
     Route: 042
     Dates: start: 20190523, end: 20190523
  2. VANCOMYCIN HCL [Suspect]
     Active Substance: VANCOMYCIN HYDROCHLORIDE
     Dosage: 1 G, 2X/DAY
     Route: 042
     Dates: start: 20190524, end: 20190524
  3. CEFEPIME HCL [Suspect]
     Active Substance: CEFEPIME HYDROCHLORIDE
     Indication: PYREXIA
     Dosage: 2 G, 3X/DAY
     Route: 042
     Dates: start: 20190523, end: 20190527
  4. CARBOPLATIN. [Suspect]
     Active Substance: CARBOPLATIN
     Indication: OESOPHAGEAL ADENOCARCINOMA
     Dosage: 199.6 MG, UNK
     Route: 042
     Dates: start: 20190425
  5. PACLITAXEL. [Suspect]
     Active Substance: PACLITAXEL
     Indication: OESOPHAGEAL ADENOCARCINOMA
     Dosage: 112 MG, UNK
     Route: 042
     Dates: start: 20190425, end: 20190522
  6. AVELUMAB [Suspect]
     Active Substance: AVELUMAB
     Indication: OESOPHAGEAL ADENOCARCINOMA
     Dosage: 1030 MG, UNK
     Route: 042
     Dates: start: 20190522, end: 20190522
  7. CARBOPLATIN. [Suspect]
     Active Substance: CARBOPLATIN
     Dosage: 219.4 MG, UNK
     Route: 042
     Dates: end: 20190522

REACTIONS (4)
  - Hyperglycaemia [Not Recovered/Not Resolved]
  - Confusional state [Recovered/Resolved]
  - Pyrexia [Unknown]
  - Enterocolitis infectious [Recovered/Resolved]

NARRATIVE: CASE EVENT DATE: 20190522
